FAERS Safety Report 5444195-X (Version None)
Quarter: 2007Q3

REPORT INFORMATION
  Report Type: 
  Country: None (occurrence: None)
  Receive Date: 20070831
  Receipt Date: 20070820
  Transmission Date: 20080115
  Serious: Yes (Hospitalization)
  Sender: FDA-Public Use
  Company Number: 2007S1007924

PATIENT
  Age: 72 Year
  Sex: Female
  Weight: 85 kg

DRUGS (14)
  1. METOPROLOL TARTRATE [Suspect]
     Indication: HYPERTENSION
     Dosage: 50 MG; TWICE A DAY; ORAL; 62.5 MG; TWICE A DAY; ORAL; 50 MG; TWICE A DAY; ORAL
     Route: 048
  2. FELODIPINE [Concomitant]
  3. CANDESARTAN CILEXETIL [Concomitant]
  4. FUROSEMIDE [Concomitant]
  5. FOSINOPRIL SODIUM [Concomitant]
  6. ASPIRIN [Concomitant]
  7. ENTERIC COATED [Concomitant]
  8. ROSUVASTATIN [Concomitant]
  9. LEVOTHYROXINE SODIUM [Concomitant]
  10. INSULIN NPH /01428202/ [Concomitant]
  11. INSULIN REGULAR /01223401/ [Concomitant]
  12. CITALOPRAM HYDROBROMIDE [Concomitant]
  13. BROMAZEPAM [Concomitant]
  14. COLCHICINE [Concomitant]

REACTIONS (13)
  - BLOOD PRESSURE INCREASED [None]
  - CARDIAC FAILURE CONGESTIVE [None]
  - COUGH [None]
  - DEHYDRATION [None]
  - DRUG INTERACTION [None]
  - DYSPNOEA [None]
  - FAECAL INCONTINENCE [None]
  - FALL [None]
  - HYPERKALAEMIA [None]
  - LOWER RESPIRATORY TRACT INFECTION [None]
  - PNEUMONIA [None]
  - RENAL FAILURE ACUTE [None]
  - URINARY INCONTINENCE [None]
